FAERS Safety Report 7933660-9 (Version None)
Quarter: 2011Q4

REPORT INFORMATION
  Report Type: 
  Country: None (occurrence: None)
  Receive Date: 20111122
  Receipt Date: 20111117
  Transmission Date: 20120403
  Serious: Yes (Hospitalization, Other)
  Sender: FDA-Public Use
  Company Number: DE-ROCHE-1005859

PATIENT
  Sex: Male
  Weight: 75 kg

DRUGS (2)
  1. MABTHERA [Suspect]
     Indication: B-CELL LYMPHOMA
     Route: 042
     Dates: start: 20090901, end: 20110601
  2. ACETYLCYSTEINE [Concomitant]
     Route: 048
     Dates: start: 20110101

REACTIONS (4)
  - RESPIRATORY TRACT INFECTION [None]
  - PNEUMONIA [None]
  - LYMPHOPENIA [None]
  - IMMUNODEFICIENCY [None]
